FAERS Safety Report 8825465 (Version 3)
Quarter: 2012Q4

REPORT INFORMATION
  Report Type: 
  Country: DK (occurrence: DK)
  Receive Date: 20121004
  Receipt Date: 20121029
  Transmission Date: 20130627
  Serious: Yes (Other)
  Sender: FDA-Public Use
  Company Number: DK-JNJFOC-20120913002

PATIENT
  Sex: Female

DRUGS (7)
  1. IMODIUM PLUS [Suspect]
     Route: 065
  2. IMODIUM PLUS [Suspect]
     Indication: DIARRHOEA
     Route: 065
     Dates: start: 201207
  3. BIFIFORM [Suspect]
     Indication: PRODUCT USED FOR UNKNOWN INDICATION
     Route: 065
     Dates: start: 20120626, end: 20120630
  4. MAGNESIUM OXIDE [Suspect]
     Indication: CONSTIPATION
     Route: 065
  5. UNSPECIFIED SUPPOSITORY [Suspect]
     Indication: CONSTIPATION
     Route: 065
  6. KLYX [Suspect]
     Indication: CONSTIPATION
     Route: 054
  7. UNKNOWN MEDICATION [Suspect]
     Indication: CONSTIPATION
     Route: 054

REACTIONS (9)
  - Abscess intestinal [Recovered/Resolved]
  - Gastrointestinal disorder [Recovered/Resolved]
  - Haemorrhoids [Recovered/Resolved]
  - Constipation [None]
  - Diarrhoea [None]
  - Sleep disorder [None]
  - Product quality issue [None]
  - Faeces discoloured [None]
  - Painful defaecation [None]
